FAERS Safety Report 10885840 (Version 2)
Quarter: 2015Q1

REPORT INFORMATION
  Report Type: Spontaneous
  Country: US (occurrence: None)
  Receive Date: 20150227
  Receipt Date: 20150311
  Transmission Date: 20150721
  Serious: No
  Sender: FDA-Public Use
  Company Number: 1713747-2015-99948

PATIENT
  Age: 36 Year
  Sex: Female
  Weight: 66 kg

DRUGS (26)
  1. NEPHRO-CAPS [Concomitant]
  2. FMC BLOOD LINES [Concomitant]
     Active Substance: DEVICE
  3. NEURONTIN [Concomitant]
     Active Substance: GABAPENTIN
  4. COUMADIN [Concomitant]
     Active Substance: WARFARIN SODIUM
  5. LISINOPRIL. [Concomitant]
     Active Substance: LISINOPRIL
  6. ZOLOFT [Concomitant]
     Active Substance: SERTRALINE HYDROCHLORIDE
  7. FRESENIUS 2008K DIALYSIS MACHINE [Concomitant]
     Active Substance: DEVICE
  8. NATURALYTE [Concomitant]
     Active Substance: ACETIC ACID\SODIUM ACETATE
  9. TRAZODONE [Concomitant]
     Active Substance: TRAZODONE HYDROCHLORIDE
  10. HUMALOG [Concomitant]
     Active Substance: INSULIN LISPRO
  11. GABAPENTIN. [Concomitant]
     Active Substance: GABAPENTIN
  12. NORMAL SALINE [Concomitant]
     Active Substance: SODIUM CHLORIDE
  13. BABY ASPIRIN [Concomitant]
     Active Substance: ASPIRIN
  14. RENVELA [Concomitant]
     Active Substance: SEVELAMER CARBONATE
  15. 0.9% SODIUM CHLORIDE INJECTION, USP IN MINI-BAG PLUS CONTAINER [Suspect]
     Active Substance: SODIUM CHLORIDE
     Indication: CHRONIC KIDNEY DISEASE
     Dosage: HEMODIALYSIS
     Dates: start: 20111005
  16. GRANUFLO [Concomitant]
     Active Substance: ACETIC ACID\SODIUM ACETATE
  17. TUMS [Concomitant]
     Active Substance: CALCIUM CARBONATE
  18. LOVENOX [Concomitant]
     Active Substance: ENOXAPARIN SODIUM
  19. CALCIFEROL [Concomitant]
     Active Substance: ERGOCALCIFEROL
  20. COREG [Concomitant]
     Active Substance: CARVEDILOL
  21. DIALYZER [Concomitant]
  22. EPOGEN [Concomitant]
     Active Substance: ERYTHROPOIETIN
  23. ZEMPLAR [Concomitant]
     Active Substance: PARICALCITOL
  24. SODIUM BICARBONATE. [Concomitant]
     Active Substance: SODIUM BICARBONATE
  25. LANTUS [Concomitant]
     Active Substance: INSULIN GLARGINE
  26. NORVASC [Concomitant]
     Active Substance: AMLODIPINE BESYLATE

REACTIONS (9)
  - Incorrect drug administration duration [None]
  - Atelectasis [None]
  - Face oedema [None]
  - Treatment noncompliance [None]
  - Leukocytosis [None]
  - Drug dose omission [None]
  - Tachycardia [None]
  - Lung infiltration [None]
  - Oedema peripheral [None]

NARRATIVE: CASE EVENT DATE: 20111005
